FAERS Safety Report 5858558-1 (Version None)
Quarter: 2008Q3

REPORT INFORMATION
  Report Type: 
  Country: None (occurrence: None)
  Receive Date: 20080826
  Receipt Date: 20080814
  Transmission Date: 20090109
  Serious: Yes (Death, Hospitalization)
  Sender: FDA-Public Use
  Company Number: PH-SANOFI-SYNTHELABO-A01200809662

PATIENT
  Sex: Female
  Weight: 45 kg

DRUGS (10)
  1. MUCOSTA [Concomitant]
     Indication: UPPER GASTROINTESTINAL HAEMORRHAGE
     Route: 050
     Dates: start: 20080602, end: 20080606
  2. OMEPRAZOLE [Concomitant]
     Indication: UPPER GASTROINTESTINAL HAEMORRHAGE
     Dosage: 40 MG
     Route: 042
     Dates: start: 20080602, end: 20080606
  3. POTASSIUM CHLORIDE [Concomitant]
     Indication: HYPOKALAEMIA
     Route: 050
     Dates: start: 20080602, end: 20080606
  4. DIGOXIN [Concomitant]
     Indication: MYOCARDIAL INFARCTION
     Route: 050
     Dates: start: 20080602, end: 20080606
  5. SIMVASTATIN [Concomitant]
     Indication: DYSLIPIDAEMIA
     Route: 050
     Dates: start: 20080602, end: 20080606
  6. CITICOLINE [Concomitant]
     Indication: CEREBROVASCULAR ACCIDENT
     Route: 042
     Dates: start: 20080602, end: 20080606
  7. HEPARIN [Suspect]
     Indication: ACUTE MYOCARDIAL INFARCTION
     Dosage: 1000 UNIT
     Route: 042
     Dates: start: 20080603, end: 20080606
  8. ASPIRIN [Suspect]
     Indication: CEREBROVASCULAR ACCIDENT
     Route: 050
     Dates: start: 20080602, end: 20080606
  9. PLAVIX [Suspect]
     Indication: CEREBROVASCULAR ACCIDENT
     Route: 050
     Dates: start: 20080601, end: 20080606
  10. PLAVIX [Suspect]
     Indication: ACUTE MYOCARDIAL INFARCTION
     Route: 050
     Dates: start: 20080601, end: 20080606

REACTIONS (4)
  - ACUTE MYOCARDIAL INFARCTION [None]
  - DRUG INEFFECTIVE [None]
  - ISCHAEMIC STROKE [None]
  - UPPER GASTROINTESTINAL HAEMORRHAGE [None]
